FAERS Safety Report 9083843 (Version 1)
Quarter: 2013Q1

REPORT INFORMATION
  Report Type: Spontaneous
  Country: CA (occurrence: CA)
  Receive Date: 20130218
  Receipt Date: 20130218
  Transmission Date: 20140127
  Serious: Yes (Other)
  Sender: FDA-Public Use
  Company Number: PHHY2012CA113951

PATIENT
  Age: 75 Year
  Sex: Female

DRUGS (3)
  1. SANDOSTATIN (OCTREOTIDE ACETATE) [Suspect]
     Indication: NEUROENDOCRINE TUMOUR
     Dosage: 100 UG, TEST DOSE
     Route: 058
     Dates: start: 20121130
  2. SANDOSTATIN (OCTREOTIDE ACETATE) [Suspect]
     Dosage: 100 UG, TEST DOSE
     Route: 058
     Dates: start: 20130117
  3. SANDOSTATIN (OCTREOTIDE ACETATE) [Suspect]
     Dosage: 100 UG, TEST DOSE
     Route: 058
     Dates: start: 20130124, end: 20130124

REACTIONS (5)
  - Hepatic lesion [Unknown]
  - Abdominal discomfort [Unknown]
  - Diarrhoea [Recovered/Resolved]
  - Rash macular [Unknown]
  - Flushing [Unknown]
